FAERS Safety Report 5083652-5 (Version None)
Quarter: 2006Q3

REPORT INFORMATION
  Report Type: 
  Country: None (occurrence: None)
  Receive Date: 20060818
  Receipt Date: 20060714
  Transmission Date: 20061208
  Serious: Yes (Other)
  Sender: FDA-Public Use
  Company Number: PHBS2006JP10658

PATIENT
  Age: 33 Year
  Sex: Female

DRUGS (2)
  1. LAMISIL [Suspect]
     Indication: NAIL TINEA
     Dosage: 125 MG/D
     Route: 048
     Dates: start: 20060606, end: 20060620
  2. LAMISIL [Suspect]
     Indication: TINEA PEDIS
     Route: 061
     Dates: start: 20060524

REACTIONS (14)
  - BLOOD ALKALINE PHOSPHATASE INCREASED [None]
  - DISCOMFORT [None]
  - ERYTHEMA [None]
  - HAEMORRHAGE SUBCUTANEOUS [None]
  - LYMPHOCYTE STIMULATION TEST NEGATIVE [None]
  - NEOPLASM SKIN [None]
  - OEDEMA [None]
  - OEDEMA PERIPHERAL [None]
  - PAIN [None]
  - PAIN IN EXTREMITY [None]
  - RASH ERYTHEMATOUS [None]
  - SWELLING [None]
  - TENDERNESS [None]
  - TUMOUR HAEMORRHAGE [None]
